FAERS Safety Report 23956148 (Version 1)
Quarter: 2024Q2

REPORT INFORMATION
  Report Type: Spontaneous
  Country: CA (occurrence: CA)
  Receive Date: 20240610
  Receipt Date: 20240610
  Transmission Date: 20240716
  Serious: Yes (Life-Threatening, Hospitalization, Other)
  Sender: FDA-Public Use
  Company Number: CA-TEVA-VS-3205624

PATIENT
  Age: 8 Year
  Sex: Female

DRUGS (2)
  1. DOXORUBICIN [Suspect]
     Active Substance: DOXORUBICIN
     Indication: Rhabdoid tumour
     Dosage: DOXORUBICIN INJECTION, DOSE FORM: SOLUTION INTRAVENOUS, FREQUENCY: ONCE
     Route: 042
  2. CYCLOPHOSPHAMIDE [Suspect]
     Active Substance: CYCLOPHOSPHAMIDE
     Indication: Rhabdoid tumour
     Dosage: DOSE FORM: POWDER FOR SOLUTION INTRAVENOUS, FREQUENCY: ONCE
     Route: 042

REACTIONS (2)
  - Neutropenia [Recovering/Resolving]
  - Pyrexia [Recovering/Resolving]
